FAERS Safety Report 23363391 (Version 1)
Quarter: 2024Q1

REPORT INFORMATION
  Report Type: Spontaneous
  Country: ZA (occurrence: ZA)
  Receive Date: 20240103
  Receipt Date: 20240103
  Transmission Date: 20240410
  Serious: Yes (Death, Other)
  Sender: FDA-Public Use
  Company Number: ZA-PFIZER INC-202400000876

PATIENT
  Age: 20 Year
  Sex: Female

DRUGS (2)
  1. TRANEXAMIC ACID [Suspect]
     Active Substance: TRANEXAMIC ACID
     Dosage: UNK
     Route: 037
  2. FENTANYL [Suspect]
     Active Substance: FENTANYL\FENTANYL CITRATE
     Dosage: UNK
     Route: 037

REACTIONS (5)
  - Incorrect route of product administration [Fatal]
  - Wrong product administered [Fatal]
  - Maternal exposure during pregnancy [Fatal]
  - Product confusion [Fatal]
  - Seizure [Fatal]
